FAERS Safety Report 8387725-0 (Version None)
Quarter: 2012Q2

REPORT INFORMATION
  Report Type: 
  Country: None (occurrence: None)
  Receive Date: 20120525
  Receipt Date: 20120515
  Transmission Date: 20120825
  Serious: Yes (Death)
  Sender: FDA-Public Use
  Company Number: US-ELI_LILLY_AND_COMPANY-US201205001703

PATIENT
  Sex: Male
  Weight: 57 kg

DRUGS (5)
  1. FORTEO [Suspect]
     Dosage: UNK
  2. ATENOLOL [Concomitant]
     Dosage: 50 MG, QD
  3. TRAMADOL HCL [Concomitant]
     Dosage: 50 MG, PRN
  4. ASPIRIN [Concomitant]
     Dosage: UNK, UNKNOWN
  5. DIOVAN HCT [Concomitant]
     Dosage: UNK, UNKNOWN

REACTIONS (1)
  - CORONARY ARTERY DISEASE [None]
